FAERS Safety Report 9544296 (Version 1)
Quarter: 2013Q3

REPORT INFORMATION
  Report Type: Spontaneous
  Country: CA (occurrence: CA)
  Receive Date: 20130923
  Receipt Date: 20130923
  Transmission Date: 20140515
  Serious: Yes (Hospitalization)
  Sender: FDA-Public Use
  Company Number: CA-B.I. PHARMACEUTICALS,INC./RIDGEFIELD-2013-CN-01553CN

PATIENT
  Age: 81 Year
  Sex: Female

DRUGS (3)
  1. SPIRIVA [Suspect]
     Dosage: 18 MCG
  2. NORVASC [Concomitant]
     Indication: HYPERTENSION
     Dosage: 5 MG
  3. MEDICATION NOT FURTHER SPECIFIED [Concomitant]

REACTIONS (3)
  - Brain cancer metastatic [Not Recovered/Not Resolved]
  - Breast cancer [Recovered/Resolved]
  - Incorrect route of drug administration [Recovered/Resolved]
